FAERS Safety Report 10157000 (Version 1)
Quarter: 2014Q2

REPORT INFORMATION
  Report Type: Spontaneous
  Country: BR (occurrence: BR)
  Receive Date: 20140505
  Receipt Date: 20140505
  Transmission Date: 20141212
  Serious: Yes (Hospitalization)
  Sender: FDA-Public Use
  Company Number: BR-PFIZER INC-2014120328

PATIENT
  Age: 85 Year
  Sex: Female
  Weight: 52 kg

DRUGS (6)
  1. FRONTAL [Suspect]
     Indication: SLEEP DISORDER
     Dosage: 1 TABLET OF 1 MG, DAILY
     Route: 048
     Dates: start: 20100517
  2. OLMETECANLO [Suspect]
     Indication: BLOOD PRESSURE ABNORMAL
     Dosage: 1 TABLET, DAILY
     Route: 048
     Dates: start: 20120305
  3. NORVASC [Suspect]
     Indication: BLOOD PRESSURE ABNORMAL
     Dosage: 1 TABLET OF 5 MG, DAILY
     Route: 048
     Dates: start: 20100517
  4. LIPITOR [Suspect]
     Dosage: 1 TABLET OF 20 MG, DAILY
     Route: 048
     Dates: start: 20110910
  5. CARDILOL [Concomitant]
     Dosage: 1 TABLET, 2X/DAY
     Dates: start: 2004
  6. CLOPIN [Concomitant]
     Indication: BLOOD DISORDER
     Dosage: 1 TABLET OF AN UNSPECIFIED DOSE, DAILY

REACTIONS (1)
  - Gastrointestinal neoplasm [Unknown]
